FAERS Safety Report 4571144-9 (Version None)
Quarter: 2005Q1

REPORT INFORMATION
  Report Type: 
  Country: None (occurrence: None)
  Receive Date: 20050202
  Receipt Date: 20050124
  Transmission Date: 20050727
  Serious: Yes (Hospitalization)
  Sender: FDA-Public Use
  Company Number: 2005020293

PATIENT
  Age: 65 Year
  Sex: Female

DRUGS (2)
  1. DALTEPARIN (DALTEPARIN) [Suspect]
     Indication: PROPHYLAXIS
     Dates: start: 20040101, end: 20050101
  2. OXYCODONE HYDROCHLORIDE AND ACETAMINOPHEN [Concomitant]

REACTIONS (3)
  - BLOOD ELECTROLYTES ABNORMAL [None]
  - CONFUSIONAL STATE [None]
  - PSYCHOTIC DISORDER [None]
